FAERS Safety Report 19164862 (Version 2)
Quarter: 2021Q3

REPORT INFORMATION
  Report Type: Spontaneous
  Country: US (occurrence: US)
  Receive Date: 20210421
  Receipt Date: 20210729
  Transmission Date: 20211014
  Serious: No
  Sender: FDA-Public Use
  Company Number: US-PARATEK PHARMACEUTICALS, INC.-2021PTK00011

PATIENT
  Age: 51 Year
  Sex: Female
  Weight: 90.7 kg

DRUGS (15)
  1. LASIX [Concomitant]
     Active Substance: FUROSEMIDE
  2. NUZYRA [Suspect]
     Active Substance: OMADACYCLINE
     Indication: SKIN ULCER
     Dosage: 300 MG, 1X/DAY AT NIGHT
     Route: 048
     Dates: start: 20210115, end: 20210201
  3. NUZYRA [Suspect]
     Active Substance: OMADACYCLINE
     Indication: ACINETOBACTER INFECTION
  4. NAPROXEN. [Concomitant]
     Active Substance: NAPROXEN
  5. VISTARIL [Concomitant]
     Active Substance: HYDROXYZINE PAMOATE
  6. NUZYRA [Suspect]
     Active Substance: OMADACYCLINE
     Indication: SKIN ULCER
  7. ASPIRIN. [Concomitant]
     Active Substance: ASPIRIN
  8. LEVOTHYROXINE. [Concomitant]
     Active Substance: LEVOTHYROXINE
  9. ZOFRAN [Concomitant]
     Active Substance: ONDANSETRON HYDROCHLORIDE
  10. PEPCID [Concomitant]
     Active Substance: FAMOTIDINE
  11. ATORVASTATIN [Concomitant]
     Active Substance: ATORVASTATIN
  12. COREG [Concomitant]
     Active Substance: CARVEDILOL
  13. PLAVIX [Concomitant]
     Active Substance: CLOPIDOGREL BISULFATE
  14. METHADONE [Concomitant]
     Active Substance: METHADONE HYDROCHLORIDE
  15. TRINTELLIX [Concomitant]
     Active Substance: VORTIOXETINE HYDROBROMIDE

REACTIONS (3)
  - Off label use [Recovered/Resolved]
  - Transaminases increased [Recovered/Resolved]
  - Blood alkaline phosphatase increased [Recovered/Resolved]

NARRATIVE: CASE EVENT DATE: 20210108
